FAERS Safety Report 6717233-1 (Version None)
Quarter: 2010Q2

REPORT INFORMATION
  Report Type: 
  Country: None (occurrence: None)
  Receive Date: 20100510
  Receipt Date: 20100503
  Transmission Date: 20101027
  Serious: Yes (Death, Hospitalization, Other)
  Sender: FDA-Public Use
  Company Number: PHHY2010US28521

PATIENT
  Age: 89 Year
  Sex: Male

DRUGS (10)
  1. METOPROLOL [Suspect]
  2. METFORMIN HYDROCHLORIDE [Suspect]
  3. ROSIGLITAZONE [Concomitant]
  4. ACETYLSALICYLIC ACID [Concomitant]
  5. CAPTOPRIL [Concomitant]
  6. ATORVASTATIN [Concomitant]
  7. FUROSEMIDE [Concomitant]
  8. TOLAZAMIDE [Concomitant]
  9. NIFEDIPINE [Concomitant]
  10. CIMETIDINE [Concomitant]

REACTIONS (29)
  - ACUTE INTERSTITIAL PNEUMONITIS [None]
  - ARTERIOSCLEROSIS [None]
  - ASBESTOSIS [None]
  - BLOOD GLUCOSE INCREASED [None]
  - BODY TEMPERATURE DECREASED [None]
  - CARDIAC ARREST [None]
  - CHRONIC OBSTRUCTIVE PULMONARY DISEASE [None]
  - COUGH [None]
  - DECREASED APPETITE [None]
  - DYSPNOEA [None]
  - EMPHYSEMA [None]
  - GAIT DISTURBANCE [None]
  - HYPOTENSION [None]
  - LEFT VENTRICULAR HYPERTROPHY [None]
  - PLEURAL EFFUSION [None]
  - PLEURAL FIBROSIS [None]
  - PNEUMONIA [None]
  - PULMONARY ARTERIAL HYPERTENSION [None]
  - PULMONARY ARTERY DILATATION [None]
  - PULMONARY FIBROSIS [None]
  - PULMONARY HAEMORRHAGE [None]
  - PULMONARY OEDEMA [None]
  - RALES [None]
  - SOMNOLENCE [None]
  - SYNCOPE [None]
  - TRICUSPID VALVE INCOMPETENCE [None]
  - URINE OUTPUT DECREASED [None]
  - WEIGHT DECREASED [None]
  - WHEEZING [None]
